FAERS Safety Report 4334150-5 (Version None)
Quarter: 2004Q2

REPORT INFORMATION
  Report Type: 
  Country: None (occurrence: None)
  Receive Date: 20040402
  Receipt Date: 20040317
  Transmission Date: 20050107
  Serious: Yes (Death)
  Sender: FDA-Public Use
  Company Number: BE-JNJFOC-20040200401

PATIENT
  Age: 76 Year
  Sex: Male

DRUGS (3)
  1. PROPULSID [Suspect]
     Indication: IMPAIRED GASTRIC EMPTYING
     Dosage: 20 MG, 2 IN 1 DAY
     Dates: start: 20030224, end: 20030501
  2. PROLOPA 125 (MADOPAR) [Concomitant]
  3. TONICA (MULTIVITAMIN AND MINERAL SUPPLEMENT) [Concomitant]

REACTIONS (5)
  - BILE DUCT CANCER [None]
  - CONDITION AGGRAVATED [None]
  - GENERAL PHYSICAL HEALTH DETERIORATION [None]
  - IMPAIRED GASTRIC EMPTYING [None]
  - METASTASIS [None]
